FAERS Safety Report 23570292 (Version 1)
Quarter: 2024Q1

REPORT INFORMATION
  Report Type: Report from Study
  Country: US (occurrence: US)
  Receive Date: 20240227
  Receipt Date: 20240227
  Transmission Date: 20240409
  Serious: Yes (Hospitalization, Other)
  Sender: FDA-Public Use
  Company Number: US-ABBVIE-5654389

PATIENT
  Age: 61 Year
  Sex: Female

DRUGS (2)
  1. HUMIRA [Suspect]
     Active Substance: ADALIMUMAB
     Indication: Colitis ulcerative
     Route: 058
     Dates: start: 20221202
  2. IBUPROFEN [Suspect]
     Active Substance: IBUPROFEN
     Indication: Product used for unknown indication
     Route: 065

REACTIONS (7)
  - Renal impairment [Recovered/Resolved]
  - Toothache [Unknown]
  - Fall [Unknown]
  - Blood pressure decreased [Unknown]
  - Localised infection [Unknown]
  - Stress fracture [Unknown]
  - Skin laceration [Unknown]

NARRATIVE: CASE EVENT DATE: 20240120
